FAERS Safety Report 7273359-8 (Version None)
Quarter: 2011Q1

REPORT INFORMATION
  Report Type: 
  Country: None (occurrence: None)
  Receive Date: 20110203
  Receipt Date: 20100825
  Transmission Date: 20110831
  Serious: No
  Sender: FDA-Public Use
  Company Number: US-ABBOTT-10P-163-0667048-00

PATIENT
  Age: 61 Year
  Sex: Female

DRUGS (3)
  1. SYNTHROID [Suspect]
     Dates: start: 20090101
  2. LEVOTHYROXINE SODIUM [Suspect]
     Indication: HYPOTHYROIDISM
     Dates: start: 20090101, end: 20090101
  3. SYNTHROID [Suspect]
     Indication: HYPOTHYROIDISM
     Dates: start: 20080101, end: 20090101

REACTIONS (2)
  - THYROID DISORDER [None]
  - MYALGIA [None]
